FAERS Safety Report 21971289 (Version 1)
Quarter: 2023Q1

REPORT INFORMATION
  Report Type: Spontaneous
  Country: CA (occurrence: CA)
  Receive Date: 20230209
  Receipt Date: 20230209
  Transmission Date: 20230418
  Serious: Yes (Other)
  Sender: FDA-Public Use
  Company Number: CA-TAKEDA-2023TUS012836

PATIENT
  Age: 68 Year
  Sex: Female
  Weight: 61 kg

DRUGS (6)
  1. CUVITRU [Suspect]
     Active Substance: HUMAN IMMUNOGLOBULIN G
     Indication: Hypogammaglobulinaemia
     Dosage: 8 GRAM, 1/WEEK
     Route: 058
     Dates: start: 202202
  2. COUMADIN [Concomitant]
     Active Substance: WARFARIN SODIUM
  3. IVABRADINE [Concomitant]
     Active Substance: IVABRADINE
  4. SENOKOT [Concomitant]
     Active Substance: SENNOSIDES
  5. VITAMIN D [Concomitant]
     Active Substance: VITAMIN D NOS
  6. MAGNESIUM [Concomitant]
     Active Substance: MAGNESIUM

REACTIONS (3)
  - Meningitis aseptic [Unknown]
  - Musculoskeletal stiffness [Unknown]
  - Sinusitis [Unknown]
